FAERS Safety Report 13062760 (Version 1)
Quarter: 2016Q4

REPORT INFORMATION
  Report Type: Report from Study
  Country: IN (occurrence: IN)
  Receive Date: 20161226
  Receipt Date: 20161226
  Transmission Date: 20170207
  Serious: Yes (Hospitalization, Disabling)
  Sender: FDA-Public Use
  Company Number: PHHY2016IN177379

PATIENT
  Age: 63 Year
  Sex: Male
  Weight: 71 kg

DRUGS (1)
  1. SEQUADRA INHALER [Suspect]
     Active Substance: GLYCOPYRRONIUM\INDACATEROL
     Indication: CHRONIC OBSTRUCTIVE PULMONARY DISEASE
     Dosage: 1 DF (110/50 UG), QD
     Route: 055
     Dates: start: 20160922

REACTIONS (2)
  - Paralysis [Unknown]
  - Paralytic disability [Unknown]

NARRATIVE: CASE EVENT DATE: 20161219
